FAERS Safety Report 8824793 (Version 1)
Quarter: 2012Q4

REPORT INFORMATION
  Report Type: Report from Study
  Country: FR (occurrence: FR)
  Receive Date: 20121004
  Receipt Date: 20121004
  Transmission Date: 20130627
  Serious: Yes (Hospitalization)
  Sender: FDA-Public Use
  Company Number: FR-JNJFOC-20121000914

PATIENT
  Sex: Female
  Weight: 57 kg

DRUGS (2)
  1. REMICADE [Suspect]
     Indication: COLITIS ULCERATIVE
     Route: 042
     Dates: start: 20110303, end: 20110609
  2. FIVASA [Suspect]
     Indication: COLITIS ULCERATIVE
     Route: 048
     Dates: start: 20111109, end: 20120221

REACTIONS (1)
  - Systemic lupus erythematosus [Recovering/Resolving]
